FAERS Safety Report 5169924-4 (Version None)
Quarter: 2006Q4

REPORT INFORMATION
  Report Type: 
  Country: None (occurrence: None)
  Receive Date: 20061212
  Receipt Date: 20060824
  Transmission Date: 20070319
  Serious: Yes (Death)
  Sender: FDA-Public Use
  Company Number: US-ELI_LILLY_AND_COMPANY-US200608005401

PATIENT
  Age: 28 Year
  Sex: Male
  Weight: 81.632 kg

DRUGS (4)
  1. ZYPREXA [Suspect]
     Indication: BIPOLAR DISORDER
     Dosage: 25 MG, UNK
     Dates: start: 20010101, end: 20050101
  2. QUETIAPINE FUMARATE [Concomitant]
     Dates: start: 20000101, end: 20050101
  3. CHLORPROMAZINE [Concomitant]
     Dates: start: 19990101, end: 20050101
  4. DEPAKOTE [Concomitant]
     Dates: start: 19990101, end: 20050101

REACTIONS (4)
  - DEATH [None]
  - HYPERGLYCAEMIA [None]
  - INCORRECT DOSE ADMINISTERED [None]
  - PRESCRIBED OVERDOSE [None]
